FAERS Safety Report 5972626-5 (Version None)
Quarter: 2008Q4

REPORT INFORMATION
  Report Type: 
  Country: None (occurrence: None)
  Receive Date: 20081201
  Receipt Date: 20081122
  Transmission Date: 20090506
  Serious: Yes (Hospitalization)
  Sender: FDA-Public Use
  Company Number: US-JNJFOC-20081105917

PATIENT
  Age: 59 Year
  Sex: Female

DRUGS (5)
  1. RISPERDAL [Suspect]
     Indication: SCHIZOAFFECTIVE DISORDER
     Route: 048
  2. SYNTHROID [Concomitant]
     Route: 048
  3. ADVAIR HFA [Concomitant]
     Dosage: 250/50 MG
     Route: 055
  4. DEPAKOTE [Concomitant]
     Dosage: 500MG IN THE MORNING AND 1000 MG AT BED TIME
     Route: 048
  5. CLINDAMYCIN HCL [Concomitant]
     Route: 048

REACTIONS (3)
  - BODY TEMPERATURE DECREASED [None]
  - CHILLS [None]
  - DISORIENTATION [None]
